FAERS Safety Report 16141064 (Version 8)
Quarter: 2020Q1

REPORT INFORMATION
  Report Type: Spontaneous
  Country: US (occurrence: US)
  Receive Date: 20190401
  Receipt Date: 20200131
  Transmission Date: 20200409
  Serious: Yes (Other)
  Sender: FDA-Public Use
  Company Number: US-PFIZER INC-2019126381

PATIENT
  Age: 88 Year
  Sex: Female
  Weight: 68.27 kg

DRUGS (9)
  1. LYRICA [Suspect]
     Active Substance: PREGABALIN
     Indication: MUSCLE SPASMS
     Dosage: 50 MG, THRICE DAILY
     Route: 048
     Dates: start: 20170928
  2. LYRICA [Suspect]
     Active Substance: PREGABALIN
     Indication: PRURITUS
  3. ASPERCREME PAIN RELIEVING [Concomitant]
     Active Substance: TROLAMINE SALICYLATE
     Indication: PRURITUS
     Dosage: UNK
  4. LYRICA [Suspect]
     Active Substance: PREGABALIN
     Indication: BURNING SENSATION
  5. ASPERCREME PAIN RELIEVING [Concomitant]
     Active Substance: TROLAMINE SALICYLATE
     Indication: MUSCLE SPASMS
  6. NORCO [Concomitant]
     Active Substance: ACETAMINOPHEN\HYDROCODONE BITARTRATE
     Dosage: UNK
  7. LYRICA [Suspect]
     Active Substance: PREGABALIN
     Indication: FIBROMYALGIA
  8. LYRICA [Suspect]
     Active Substance: PREGABALIN
     Indication: NEUROPATHY PERIPHERAL
     Dosage: 50 MG, TWICE DAILY
     Route: 048
  9. ASPERCREME PAIN RELIEVING [Concomitant]
     Active Substance: TROLAMINE SALICYLATE
     Indication: BURNING SENSATION

REACTIONS (5)
  - Hallucination [Recovered/Resolved]
  - Dizziness [Recovered/Resolved]
  - Flank pain [Not Recovered/Not Resolved]
  - Malaise [Unknown]
  - Scoliosis [Unknown]
